FAERS Safety Report 7006377-5 (Version None)
Quarter: 2010Q3

REPORT INFORMATION
  Report Type: 
  Country: None (occurrence: None)
  Receive Date: 20100909
  Receipt Date: 20100830
  Transmission Date: 20110219
  Serious: Yes (Hospitalization)
  Sender: FDA-Public Use
  Company Number: 2010SP043708

PATIENT
  Age: 47 Year
  Sex: Female

DRUGS (6)
  1. SAPHRIS [Suspect]
     Indication: BIPOLAR DISORDER
     Dosage: 10 MG; BID; SL
     Route: 060
     Dates: start: 20100620, end: 20100725
  2. TOPAMAX [Concomitant]
  3. WELLBUTRIN XL [Concomitant]
  4. VISTARIL [Concomitant]
  5. PRAVACHOL [Concomitant]
  6. PRILOSEC [Concomitant]

REACTIONS (3)
  - INTRACRANIAL ANEURYSM [None]
  - NEPHROGENIC DIABETES INSIPIDUS [None]
  - SUBARACHNOID HAEMORRHAGE [None]
